FAERS Safety Report 23675177 (Version 2)
Quarter: 2024Q1

REPORT INFORMATION
  Report Type: Report from Study
  Country: US (occurrence: US)
  Receive Date: 20240326
  Receipt Date: 20240329
  Transmission Date: 20240410
  Serious: Yes (Other)
  Sender: FDA-Public Use
  Company Number: US-ABBVIE-5690692

PATIENT
  Sex: Male

DRUGS (3)
  1. HUMIRA [Suspect]
     Active Substance: ADALIMUMAB
     Indication: Product used for unknown indication
     Route: 058
  2. SKYRIZI [Suspect]
     Active Substance: RISANKIZUMAB-RZAA
     Indication: Product used for unknown indication
     Route: 058
  3. INFLUENZA VIRUS VACCINE [Suspect]
     Active Substance: INFLUENZA VIRUS VACCINE
     Indication: Product used for unknown indication
     Route: 065

REACTIONS (8)
  - Amyotrophic lateral sclerosis [Not Recovered/Not Resolved]
  - Immunisation reaction [Unknown]
  - Balance disorder [Unknown]
  - Skin atrophy [Unknown]
  - Musculoskeletal disorder [Unknown]
  - Pruritus [Unknown]
  - Skin hyperpigmentation [Unknown]
  - Skin disorder [Not Recovered/Not Resolved]
